FAERS Safety Report 11864281 (Version 4)
Quarter: 2017Q4

REPORT INFORMATION
  Report Type: Spontaneous
  Country: US (occurrence: US)
  Receive Date: 20151223
  Receipt Date: 20171012
  Transmission Date: 20180320
  Serious: Yes (Other)
  Sender: FDA-Public Use
  Company Number: US-PFIZER INC-2015459748

PATIENT
  Age: 52 Year
  Sex: Female
  Weight: 127 kg

DRUGS (3)
  1. XELJANZ [Suspect]
     Active Substance: TOFACITINIB CITRATE
     Dosage: 5 MG, UNK
  2. PREDNISONE. [Concomitant]
     Active Substance: PREDNISONE
     Dosage: 15 MG, DAILY (5MG IN THE MORNING AND 10MG AT NIGHT)
  3. PREDNISONE. [Concomitant]
     Active Substance: PREDNISONE
     Dosage: 5 MG, DAILY (TAKING ZERO IN THE MORNING AND 5MG AT NIGHT)

REACTIONS (5)
  - Decreased appetite [Recovered/Resolved]
  - Pain in extremity [Unknown]
  - Intentional product misuse [Unknown]
  - Urinary retention [Recovered/Resolved]
  - Nausea [Recovered/Resolved]
